FAERS Safety Report 5873007-5 (Version None)
Quarter: 2008Q3

REPORT INFORMATION
  Report Type: 
  Country: None (occurrence: None)
  Receive Date: 20080905
  Receipt Date: 20080827
  Transmission Date: 20090109
  Serious: Yes (Other)
  Sender: FDA-Public Use
  Company Number: US-PFIZER INC-2008072409

PATIENT
  Sex: Female
  Weight: 56.2 kg

DRUGS (3)
  1. LIPITOR [Suspect]
     Indication: BLOOD CHOLESTEROL INCREASED
  2. ALL OTHER THERAPEUTIC PRODUCTS [Concomitant]
  3. VITAMIN TAB [Concomitant]

REACTIONS (3)
  - LYMPHADENOPATHY [None]
  - T-CELL LYMPHOMA [None]
  - URTICARIA [None]
